FAERS Safety Report 8201594-0 (Version None)
Quarter: 2012Q1

REPORT INFORMATION
  Report Type: 
  Country: None (occurrence: None)
  Receive Date: 20120308
  Receipt Date: 20120223
  Transmission Date: 20120608
  Serious: Yes (Hospitalization)
  Sender: FDA-Public Use
  Company Number: 2012CP000024

PATIENT
  Age: 26 Year
  Sex: Female

DRUGS (9)
  1. ELUDRIL (CHLORHEXIDINE GLUCONATE + CHLOROBUTANOL) (NO PREF. NAME) [Suspect]
     Dates: start: 20120127, end: 20120128
  2. ACETAMINOPHEN [Suspect]
     Indication: ANALGESIC THERAPY
     Dosage: 3 GRAM;1 DAY;PO
     Route: 048
     Dates: start: 20120127, end: 20120128
  3. DIPRIVAN [Suspect]
     Dosage: IV
     Route: 042
  4. ACETAMINOPHEN [Suspect]
     Indication: TOOTH EXTRACTION
     Dosage: 1 DOSAGE FORM; IV
     Route: 042
  5. SUFENTA PRESERVATIVE FREE [Suspect]
     Dosage: IV
     Route: 042
  6. OXYCODONE HYDROCHLORIDE [Suspect]
     Dosage: 1 DOSAGE FROM;IV
     Route: 042
  7. KETOPROFEN [Suspect]
     Dosage: 100 MG;IV
     Route: 042
  8. ACUPAN [Suspect]
     Dosage: IV
     Route: 042
  9. AMOXICILLIN [Suspect]
     Indication: TOOTH EXTRACTION
     Dosage: 2 GM;1 DAY;PO
     Route: 048
     Dates: start: 20120127, end: 20120128

REACTIONS (3)
  - PROTHROMBIN TIME PROLONGED [None]
  - COAGULATION FACTOR V LEVEL DECREASED [None]
  - CYTOLYTIC HEPATITIS [None]
